FAERS Safety Report 18316885 (Version 1)
Quarter: 2020Q3

REPORT INFORMATION
  Report Type: Spontaneous
  Country: FR (occurrence: FR)
  Receive Date: 20200928
  Receipt Date: 20200928
  Transmission Date: 20201103
  Serious: Yes (Hospitalization)
  Sender: FDA-Public Use
  Company Number: FR-SUN PHARMACEUTICAL INDUSTRIES LTD-2020RR-262220

PATIENT
  Age: 16 Year
  Sex: Male
  Weight: 76.4 kg

DRUGS (4)
  1. IBUPROFEN. [Suspect]
     Active Substance: IBUPROFEN
     Indication: TOOTHACHE
     Dosage: SOIT 5 COMPRIMES A 200 MG ; IN TOTAL
     Route: 048
     Dates: start: 20200818, end: 20200818
  2. AMOXICILLINE [Concomitant]
     Active Substance: AMOXICILLIN
     Indication: TOOTH INFECTION
     Dosage: 3 GRAM, DAILY
     Route: 048
  3. DOLIPRANE [Suspect]
     Active Substance: ACETAMINOPHEN
     Indication: TOOTHACHE
     Dosage: 16 GRAM IN TOTAL
     Route: 048
     Dates: start: 20200818, end: 20200818
  4. IPRAFEINE 400 MG/100 MG, COMPRIME PELLICULE [Suspect]
     Active Substance: CAFFEINE\IBUPROFEN
     Indication: TOOTHACHE
     Dosage: 1 COMPRIME
     Route: 048
     Dates: start: 20200818, end: 20200818

REACTIONS (2)
  - Abdominal pain [Recovered/Resolved]
  - Overdose [Recovered/Resolved]

NARRATIVE: CASE EVENT DATE: 20200818
